FAERS Safety Report 23845921 (Version 1)
Quarter: 2024Q2

REPORT INFORMATION
  Report Type: Spontaneous
  Country: US (occurrence: US)
  Receive Date: 20240512
  Receipt Date: 20240512
  Transmission Date: 20240716
  Serious: No
  Sender: FDA-Public Use
  Company Number: US-CIPLA LTD.-2024US00699

PATIENT

DRUGS (4)
  1. ALBUTEROL [Suspect]
     Active Substance: ALBUTEROL
     Indication: Pneumonia
     Dosage: 1-3 PUFFS EVERY 6 HOURS AS NEEDED
     Dates: start: 20240113
  2. ALBUTEROL [Suspect]
     Active Substance: ALBUTEROL
     Indication: Dyspnoea
  3. AZITHROMYCIN [Concomitant]
     Active Substance: AZITHROMYCIN
     Indication: Pneumonia
     Dosage: 250 MILLIGRAM, QD (1 TABLET ONCE A DAY)
     Route: 065
     Dates: start: 20240113
  4. MUCINEX [Concomitant]
     Active Substance: GUAIFENESIN
     Indication: Pneumonia
     Dosage: 1200 MILLIGRAM, TID (1 TABLET 3 TIMES A DAY)
     Route: 065
     Dates: start: 20240113

REACTIONS (3)
  - Off label use [Unknown]
  - Wrong technique in device usage process [Unknown]
  - Device delivery system issue [Unknown]

NARRATIVE: CASE EVENT DATE: 20240101
